FAERS Safety Report 20308669 (Version 14)
Quarter: 2025Q2

REPORT INFORMATION
  Report Type: Report from Study
  Country: US (occurrence: US)
  Receive Date: 20220107
  Receipt Date: 20250410
  Transmission Date: 20250716
  Serious: Yes (Hospitalization, Other)
  Sender: TAKEDA
  Company Number: US-TAKEDA-2021TUS078209

PATIENT
  Age: 84 Year
  Sex: Female
  Weight: 48.98 kg

DRUGS (36)
  1. HUMAN IMMUNOGLOBULIN G [Suspect]
     Active Substance: HUMAN IMMUNOGLOBULIN G
     Indication: Chronic inflammatory demyelinating polyradiculoneuropathy
  2. HUMAN IMMUNOGLOBULIN G [Suspect]
     Active Substance: HUMAN IMMUNOGLOBULIN G
     Dosage: 2000 MILLIGRAM/KILOGRAM, Q4WEEKS
  3. HUMAN IMMUNOGLOBULIN G [Suspect]
     Active Substance: HUMAN IMMUNOGLOBULIN G
  4. DIPHENHYDRAMINE [Concomitant]
     Active Substance: DIPHENHYDRAMINE
  5. EPINEPHRINE [Concomitant]
     Active Substance: EPINEPHRINE
  6. SODIUM CHLORIDE [Concomitant]
     Active Substance: SODIUM CHLORIDE
  7. LEVOTHYROXINE [Concomitant]
     Active Substance: LEVOTHYROXINE
  8. FIBER THERAPY (CALCIUM POLYCARBOPHIL) [Concomitant]
     Active Substance: CALCIUM POLYCARBOPHIL
  9. MEMANTINE [Concomitant]
     Active Substance: MEMANTINE
  10. OMEPRAZOLE [Concomitant]
     Active Substance: OMEPRAZOLE
  11. SODIUM BICARBONATE [Concomitant]
     Active Substance: SODIUM BICARBONATE
  12. ACETAMINOPHEN [Concomitant]
     Active Substance: ACETAMINOPHEN
  13. CARBIDOPA\LEVODOPA [Concomitant]
     Active Substance: CARBIDOPA\LEVODOPA
  14. AMIODARONE HYDROCHLORIDE [Concomitant]
     Active Substance: AMIODARONE HYDROCHLORIDE
  15. STOOL SOFTENER (DOCUSATE) [Concomitant]
     Active Substance: DOCUSATE
  16. FAMOTIDINE [Concomitant]
     Active Substance: FAMOTIDINE
  17. PREDNISONE [Concomitant]
     Active Substance: PREDNISONE
  18. CYANOCOBALAMIN\FOLIC ACID\PYRIDOXINE HYDROCHLORIDE [Concomitant]
     Active Substance: CYANOCOBALAMIN\FOLIC ACID\PYRIDOXINE HYDROCHLORIDE
  19. TYLENOL [Concomitant]
     Active Substance: ACETAMINOPHEN
  20. HEPARIN [Concomitant]
     Active Substance: HEPARIN SODIUM
  21. LIDOCAINE [Concomitant]
     Active Substance: LIDOCAINE
  22. Chew-e [Concomitant]
  23. ASPIRIN [Concomitant]
     Active Substance: ASPIRIN
  24. VITAMIN D [Concomitant]
     Active Substance: VITAMIN D NOS
  25. MELATONIN [Concomitant]
     Active Substance: MELATONIN
  26. FLUOXETINE HYDROCHLORIDE [Concomitant]
     Active Substance: FLUOXETINE HYDROCHLORIDE
  27. AMLODIPINE BESYLATE [Concomitant]
     Active Substance: AMLODIPINE BESYLATE
  28. UNSPECIFIED INGREDIENT [Concomitant]
     Active Substance: UNSPECIFIED INGREDIENT
  29. ALBUTEROL SULFATE [Concomitant]
     Active Substance: ALBUTEROL SULFATE
  30. TRELEGY ELLIPTA [Concomitant]
     Active Substance: FLUTICASONE FUROATE\UMECLIDINIUM BROMIDE\VILANTEROL TRIFENATATE
  31. NITROGLYCERIN [Concomitant]
     Active Substance: NITROGLYCERIN
  32. KCL [Concomitant]
     Active Substance: POTASSIUM CHLORIDE
  33. SODIUM SULFATE [Concomitant]
     Active Substance: SODIUM SULFATE
  34. VITAMIN D3 [Concomitant]
     Active Substance: CHOLECALCIFEROL
  35. Senexon [Concomitant]
  36. DIPHENHYDRAMINE HYDROCHLORIDE [Concomitant]
     Active Substance: DIPHENHYDRAMINE HYDROCHLORIDE

REACTIONS (22)
  - Chronic obstructive pulmonary disease [Unknown]
  - Aortic stenosis [Unknown]
  - Partial seizures [Unknown]
  - Cellulitis [Unknown]
  - Pneumonia [Unknown]
  - Syncope [Unknown]
  - Infusion related reaction [Unknown]
  - Bronchitis [Unknown]
  - COVID-19 [Unknown]
  - Blood pressure abnormal [Recovered/Resolved]
  - Urinary tract infection [Unknown]
  - Aortic aneurysm [Unknown]
  - Off label use [Unknown]
  - Fall [Unknown]
  - Joint injury [Unknown]
  - Back injury [Unknown]
  - Rash pruritic [Unknown]
  - Pallor [Recovered/Resolved]
  - Hypertension [Unknown]
  - Fatigue [Unknown]
  - Headache [Unknown]
  - Pain [Unknown]

NARRATIVE: CASE EVENT DATE: 20211024
